FAERS Safety Report 4709525-2 (Version None)
Quarter: 2005Q3

REPORT INFORMATION
  Report Type: 
  Country: None (occurrence: None)
  Receive Date: 20050707
  Receipt Date: 20050624
  Transmission Date: 20060218
  Serious: Yes (Other)
  Sender: FDA-Public Use
  Company Number: 2005092602

PATIENT
  Age: 85 Year
  Sex: Female
  Weight: 86.1834 kg

DRUGS (4)
  1. LIPITOR [Suspect]
     Indication: BLOOD CHOLESTEROL INCREASED
     Dosage: 10 MG (10 MG 1 IN 1D) ORAL
     Route: 048
     Dates: start: 20050601
  2. VALSARTAN [Concomitant]
  3. TIMOPTIC [Concomitant]
  4. ASPIRIN [Concomitant]

REACTIONS (8)
  - ABASIA [None]
  - CEREBROVASCULAR ACCIDENT [None]
  - DIZZINESS [None]
  - FEELING HOT [None]
  - MUSCLE SPASMS [None]
  - MYALGIA [None]
  - PAIN [None]
  - THROMBOSIS [None]
